FAERS Safety Report 10484134 (Version 5)
Quarter: 2014Q4

REPORT INFORMATION
  Report Type: Spontaneous
  Country: US (occurrence: US)
  Receive Date: 20140930
  Receipt Date: 20141119
  Transmission Date: 20150528
  Serious: Yes (Other)
  Sender: FDA-Public Use
  Company Number: US-NOVOPROD-423782

PATIENT
  Age: 29 Year
  Sex: Female
  Weight: 66.3 kg

DRUGS (7)
  1. NOVOLOG [Suspect]
     Active Substance: INSULIN ASPART
     Indication: TYPE 1 DIABETES MELLITUS
     Dosage: 13 U WITH MEALS, SLIDING SCALE
     Route: 058
     Dates: start: 2003
  2. LANTUS [Suspect]
     Active Substance: INSULIN GLARGINE
     Dosage: 15 UNITS EVERY MORNING, 25 UNITS EVERY EVENING
     Route: 058
     Dates: end: 20140910
  3. LANTUS [Suspect]
     Active Substance: INSULIN GLARGINE
     Dosage: 13 UNITS EVERY MORNING AND 18 UNITS EVERY EVENINGUNK
     Route: 058
     Dates: start: 20140910, end: 20140915
  4. LANTUS [Suspect]
     Active Substance: INSULIN GLARGINE
     Dosage: 11 UNITS EVERY MORNING AND 16 UNITS EVERY EVENING
     Route: 058
     Dates: start: 20140915
  5. LANTUS [Suspect]
     Active Substance: INSULIN GLARGINE
     Indication: TYPE 1 DIABETES MELLITUS
     Dosage: 40 U, QD
     Route: 058
     Dates: start: 2005
  6. NOVOLOG [Suspect]
     Active Substance: INSULIN ASPART
     Dosage: SLIDING SCALE 2-4-5
     Route: 058
     Dates: end: 20140915
  7. NOVOLOG [Suspect]
     Active Substance: INSULIN ASPART
     Dosage: CHANGED BACK TO SLIDING SCALE 1-2-3 FROM 2-4-5
     Route: 058
     Dates: start: 20140915

REACTIONS (3)
  - Hypoglycaemia [Recovered/Resolved]
  - Hypoglycaemia [Recovered/Resolved]
  - Hypoglycaemia [Recovered/Resolved]

NARRATIVE: CASE EVENT DATE: 20140908
